FAERS Safety Report 4865403-X (Version None)
Quarter: 2005Q4

REPORT INFORMATION
  Report Type: 
  Country: None (occurrence: None)
  Receive Date: 20051223
  Receipt Date: 20051215
  Transmission Date: 20060501
  Serious: Yes (Other)
  Sender: FDA-Public Use
  Company Number: PTWYE240315DEC05

PATIENT
  Age: 50 Year
  Sex: Female

DRUGS (3)
  1. ENBREL [Suspect]
     Indication: RHEUMATOID ARTHRITIS
     Route: 058
     Dates: start: 20010101, end: 20050101
  2. NAPROXEN [Concomitant]
  3. OMEPRAZOLE [Concomitant]

REACTIONS (3)
  - BLISTER INFECTED [None]
  - PEMPHIGOID [None]
  - SKIN INFECTION [None]
